FAERS Safety Report 17413038 (Version 1)
Quarter: 2020Q1

REPORT INFORMATION
  Report Type: Spontaneous
  Country: US (occurrence: US)
  Receive Date: 20200212
  Receipt Date: 20200212
  Transmission Date: 20200409
  Serious: No
  Sender: FDA-Public Use
  Company Number: None

PATIENT
  Age: 45 Year
  Sex: Female

DRUGS (2)
  1. BENZONATATE GENERIC FOR TESSALON PERLES [Suspect]
     Active Substance: BENZONATATE
     Indication: RESPIRATORY DISORDER
     Dosage: ?          QUANTITY:1 CAPSULE(S);?
     Route: 048
     Dates: start: 20200212, end: 20200212
  2. MUCINEX [Concomitant]
     Active Substance: GUAIFENESIN

REACTIONS (5)
  - Eye swelling [None]
  - Swollen tongue [None]
  - Sensory disturbance [None]
  - Tongue disorder [None]
  - Eye pruritus [None]

NARRATIVE: CASE EVENT DATE: 20200212
